FAERS Safety Report 5009893-0 (Version None)
Quarter: 2006Q2

REPORT INFORMATION
  Report Type: 
  Country: None (occurrence: None)
  Receive Date: 20060522
  Receipt Date: 20060508
  Transmission Date: 20061013
  Serious: Yes (Other)
  Sender: FDA-Public Use
  Company Number: 2006050024

PATIENT
  Age: 64 Year
  Sex: Female

DRUGS (9)
  1. D-PENICILLAMINE (PENICILLAMINE) [Suspect]
     Indication: SYSTEMIC SCLEROSIS
     Dates: start: 19870101
  2. COLCHICUM JTL LIQ [Concomitant]
  3. THALIDOMIDE (THALIDOMIDE) [Concomitant]
  4. MELPHALAN (MELPHALAN) [Concomitant]
  5. CYCLOPHOSPHAMIDE [Concomitant]
  6. VINCRISTINE [Concomitant]
  7. DOXORUBICIN (DOXORUBICIN) [Concomitant]
  8. PREDNISOLONE [Concomitant]
  9. ASPIRIN [Concomitant]

REACTIONS (11)
  - AMAUROSIS FUGAX [None]
  - AMYLOIDOSIS [None]
  - CARPAL TUNNEL SYNDROME [None]
  - DRUG INTOLERANCE [None]
  - DYSPHONIA [None]
  - JOINT SWELLING [None]
  - LOBAR PNEUMONIA [None]
  - PLEURAL EFFUSION [None]
  - SCLEROEDEMA [None]
  - TRANSIENT ISCHAEMIC ATTACK [None]
  - VIRAL INFECTION [None]
